FAERS Safety Report 5488062-4 (Version None)
Quarter: 2007Q4

REPORT INFORMATION
  Report Type: 
  Country: None (occurrence: None)
  Receive Date: 20071017
  Receipt Date: 20071011
  Transmission Date: 20080405
  Serious: Yes (Hospitalization)
  Sender: FDA-Public Use
  Company Number: FR-AVENTIS-200713258FR

PATIENT
  Age: 79 Year
  Sex: Female

DRUGS (15)
  1. AMARYL [Suspect]
     Route: 048
     Dates: start: 20061101, end: 20070718
  2. ACTISKENAN [Suspect]
     Route: 048
     Dates: start: 20070717, end: 20070718
  3. ZOFENIL [Suspect]
     Indication: HYPERTENSION
     Route: 048
     Dates: start: 20061101, end: 20070718
  4. VOLTAREN [Suspect]
     Route: 048
     Dates: end: 20070718
  5. LEVOTHYROX [Concomitant]
  6. GINKOR [Concomitant]
  7. PYOSTACINE [Concomitant]
  8. EFFERALGAN                         /00020001/ [Concomitant]
  9. LASIX [Concomitant]
  10. FORLAX [Concomitant]
  11. DIFFU K [Concomitant]
  12. VITAMIN B-12 [Concomitant]
  13. STEROGYL                           /00765501/ [Concomitant]
  14. RIVOTRIL [Concomitant]
  15. TOPALGIC [Concomitant]

REACTIONS (8)
  - CONFUSIONAL STATE [None]
  - DRUG INTOLERANCE [None]
  - HYPOGLYCAEMIA [None]
  - HYPOTENSION [None]
  - NAUSEA [None]
  - RENAL FAILURE ACUTE [None]
  - SOMNOLENCE [None]
  - VOMITING [None]
